FAERS Safety Report 9406845 (Version 1)
Quarter: 2013Q3

REPORT INFORMATION
  Report Type: Spontaneous
  Country: US (occurrence: US)
  Receive Date: 20130718
  Receipt Date: 20130718
  Transmission Date: 20140515
  Serious: Yes (Other)
  Sender: FDA-Public Use
  Company Number: PHEH2013US014741

PATIENT
  Sex: Female

DRUGS (1)
  1. RECLAST [Suspect]
     Dosage: UNK
     Route: 042
     Dates: start: 201305

REACTIONS (7)
  - Oral herpes [Unknown]
  - Paraesthesia [Unknown]
  - Body temperature increased [Unknown]
  - Muscle spasms [Unknown]
  - Arthralgia [Unknown]
  - Nausea [Unknown]
  - Fatigue [Unknown]
